FAERS Safety Report 7279981-7 (Version None)
Quarter: 2011Q1

REPORT INFORMATION
  Report Type: 
  Country: None (occurrence: None)
  Receive Date: 20110208
  Receipt Date: 20110201
  Transmission Date: 20110831
  Serious: Yes (Other)
  Sender: FDA-Public Use
  Company Number: US-PFIZER INC-2011024793

PATIENT
  Sex: Male

DRUGS (2)
  1. CELEBREX [Suspect]
  2. SEPTRA [Concomitant]

REACTIONS (1)
  - RASH GENERALISED [None]
